FAERS Safety Report 22661488 (Version 1)
Quarter: 2023Q2

REPORT INFORMATION
  Report Type: Spontaneous
  Country: IL (occurrence: IL)
  Receive Date: 20230630
  Receipt Date: 20230630
  Transmission Date: 20230722
  Serious: No
  Sender: FDA-Public Use
  Company Number: IL-JAZZ-2022-IL-037177

PATIENT
  Age: 15 Year
  Sex: Female

DRUGS (1)
  1. EPIDIOLEX [Suspect]
     Active Substance: CANNABIDIOL
     Indication: Lennox-Gastaut syndrome
     Dosage: 10MG/KG/DAY

REACTIONS (2)
  - Abnormal behaviour [Unknown]
  - Irritability [Unknown]
